FAERS Safety Report 9314600 (Version 3)
Quarter: 2013Q3

REPORT INFORMATION
  Report Type: Spontaneous
  Country: JP (occurrence: JP)
  Receive Date: 20130529
  Receipt Date: 20130821
  Transmission Date: 20140515
  Serious: Yes (Disabling)
  Sender: FDA-Public Use
  Company Number: JP-PFIZER INC-2013161426

PATIENT
  Age: 72 Year
  Sex: Female
  Weight: 60 kg

DRUGS (13)
  1. LYRICA [Suspect]
     Indication: LUMBAR SPINAL STENOSIS
     Dosage: 75 MG, 2X/DAY
     Route: 048
     Dates: start: 20120720, end: 20130507
  2. LYRICA [Suspect]
     Dosage: 75 MG, 1X/DAY
     Route: 048
     Dates: start: 20130705
  3. ALLOPURINOL [Suspect]
     Indication: HYPERURICAEMIA
     Dosage: 100 MG, 1X/DAY
     Route: 048
  4. EXFORGE [Suspect]
     Indication: HYPERTENSION
     Dosage: 1 DF, 1X/DAY
     Route: 048
  5. ALPRAZOLAM [Concomitant]
     Dosage: UNK
  6. PROCYLIN [Concomitant]
     Dosage: UNK
  7. AZELASTINE HYDROCHLORIDE [Concomitant]
     Dosage: UNK
  8. URINMET [Concomitant]
     Dosage: UNK
  9. FAMOGAST [Concomitant]
     Dosage: UNK
  10. TALION [Concomitant]
     Dosage: UNK
  11. CALONAL [Concomitant]
     Dosage: UNK
  12. PONTAL [Concomitant]
     Dosage: UNK
  13. ALESION [Concomitant]
     Dosage: UNK

REACTIONS (1)
  - Neuroleptic malignant syndrome [Recovered/Resolved]
